FAERS Safety Report 20405053 (Version 1)
Quarter: 2022Q1

REPORT INFORMATION
  Report Type: Spontaneous
  Country: US (occurrence: US)
  Receive Date: 20220131
  Receipt Date: 20220131
  Transmission Date: 20220423
  Serious: Yes (Hospitalization, Other)
  Sender: FDA-Public Use
  Company Number: US-RECORDATI RARE DISEASE INC.-2022000292

PATIENT
  Age: 9 Year
  Sex: Female
  Weight: 29.9 kg

DRUGS (6)
  1. DACTINOMYCIN [Suspect]
     Active Substance: DACTINOMYCIN
     Indication: Alveolar rhabdomyosarcoma
     Dosage: 0.05 MG/KG
     Route: 042
     Dates: start: 20200616, end: 20200616
  2. TEMSIROLIMUS [Suspect]
     Active Substance: TEMSIROLIMUS
     Indication: Alveolar rhabdomyosarcoma
     Dosage: 15 MILLIGRAM/SQ. METER, CYCLICAL
     Route: 042
     Dates: start: 20200616, end: 20200721
  3. CAMPTOSAR [Suspect]
     Active Substance: IRINOTECAN HYDROCHLORIDE
     Indication: Alveolar rhabdomyosarcoma
     Dosage: 50 MG/M2, CYCLICAL
     Route: 042
     Dates: start: 20200616, end: 20200710
  4. VINCRISTINE SULFATE [Suspect]
     Active Substance: VINCRISTINE SULFATE
     Indication: Alveolar rhabdomyosarcoma
     Dosage: 1.5 MG/M2, CYCLICAL
     Route: 042
     Dates: start: 20200616, end: 20200721
  5. CYCLOPHOSPHAMIDE [Suspect]
     Active Substance: CYCLOPHOSPHAMIDE
     Indication: Alveolar rhabdomyosarcoma
     Dosage: 1200 MG/M2, CYCLICAL
     Route: 042
     Dates: start: 20200616, end: 20200616
  6. GABAPENTIN [Concomitant]
     Active Substance: GABAPENTIN
     Indication: Oral pain
     Route: 065

REACTIONS (4)
  - Dehydration [Not Recovered/Not Resolved]
  - Neuropathy peripheral [Unknown]
  - Vomiting [Not Recovered/Not Resolved]
  - Diarrhoea [Not Recovered/Not Resolved]

NARRATIVE: CASE EVENT DATE: 20200728
